FAERS Safety Report 17854367 (Version 1)
Quarter: 2020Q2

REPORT INFORMATION
  Report Type: Spontaneous
  Country: IE (occurrence: IE)
  Receive Date: 20200603
  Receipt Date: 20200603
  Transmission Date: 20200714
  Serious: Yes (Other)
  Sender: FDA-Public Use
  Company Number: IE-ENDO PHARMACEUTICALS INC-2020-004083

PATIENT
  Age: 62 Year
  Sex: Male

DRUGS (2)
  1. TESTIM [Suspect]
     Active Substance: TESTOSTERONE
     Indication: MUSCLE BUILDING THERAPY
     Dosage: UNK UNKNOWN, UNKNOWN
     Route: 065
  2. TESTIM [Suspect]
     Active Substance: TESTOSTERONE
     Indication: LIBIDO DISORDER

REACTIONS (3)
  - Performance enhancing product use [Unknown]
  - Drug abuse [Unknown]
  - Hyperglycaemic hyperosmolar nonketotic syndrome [Unknown]
